FAERS Safety Report 24264146 (Version 1)
Quarter: 2024Q3

REPORT INFORMATION
  Report Type: Spontaneous
  Country: IN (occurrence: IN)
  Receive Date: 20240829
  Receipt Date: 20240829
  Transmission Date: 20241016
  Serious: Yes (Death)
  Sender: PFIZER
  Company Number: IN-PFIZER INC-PV202400087786

PATIENT
  Age: 58 Year
  Sex: Female

DRUGS (1)
  1. LORLATINIB [Suspect]
     Active Substance: LORLATINIB
     Dosage: 100 MG, 1X/DAY
     Route: 048
     Dates: start: 20240617, end: 20240821

REACTIONS (4)
  - Cardiopulmonary failure [Fatal]
  - Back pain [Unknown]
  - Muscular weakness [Unknown]
  - Constipation [Unknown]
